FAERS Safety Report 23699539 (Version 1)
Quarter: 2024Q2

REPORT INFORMATION
  Report Type: Spontaneous
  Country: FR (occurrence: FR)
  Receive Date: 20240402
  Receipt Date: 20240402
  Transmission Date: 20240716
  Serious: Yes (Other)
  Sender: FDA-Public Use
  Company Number: None

PATIENT
  Age: 54 Year
  Sex: Male

DRUGS (2)
  1. RILPIVIRINE [Suspect]
     Active Substance: RILPIVIRINE
     Indication: HIV infection
     Dosage: INSTAURATION PAR VOIE ORALE LE 08/09 A 25 MG/ ET RELAI PAR IM LE 06/10
     Route: 030
     Dates: start: 20230908
  2. VOCABRIA [Suspect]
     Active Substance: CABOTEGRAVIR SODIUM
     Indication: HIV infection
     Dosage: ORAL INITIATION ON 08/09 AT 30 MG/ AND RELAY BY IM ON 06/10
     Route: 030
     Dates: start: 20230908

REACTIONS (1)
  - Hepatic cytolysis [Unknown]

NARRATIVE: CASE EVENT DATE: 20231129
